FAERS Safety Report 23835827 (Version 1)
Quarter: 2024Q2

REPORT INFORMATION
  Report Type: Spontaneous
  Country: US (occurrence: None)
  Receive Date: 20240507
  Receipt Date: 20240507
  Transmission Date: 20240715
  Serious: Yes (Hospitalization)
  Sender: FDA-Public Use
  Company Number: None

PATIENT
  Sex: Male

DRUGS (5)
  1. TOBRAMYCIN [Suspect]
     Active Substance: TOBRAMYCIN\TOBRAMYCIN SULFATE
     Indication: Tracheitis
     Dosage: FREQUENCY : AS DIRECTED;?
     Route: 055
     Dates: start: 202402
  2. TOBRAMYCIN [Suspect]
     Active Substance: TOBRAMYCIN\TOBRAMYCIN SULFATE
     Indication: Chronic respiratory failure
  3. UPTRAVI [Concomitant]
     Active Substance: SELEXIPAG
  4. AMBRISENTAN [Concomitant]
     Active Substance: AMBRISENTAN
  5. TADALAFIL [Concomitant]
     Active Substance: TADALAFIL

REACTIONS (1)
  - Respiratory syncytial virus infection [None]
